FAERS Safety Report 25898445 (Version 2)
Quarter: 2025Q4

REPORT INFORMATION
  Report Type: Spontaneous
  Country: GB (occurrence: GB)
  Receive Date: 20251009
  Receipt Date: 20251014
  Transmission Date: 20260117
  Serious: No
  Sender: AMGEN
  Company Number: GB-AMGEN-USASP2025199372

PATIENT
  Sex: Female

DRUGS (1)
  1. REPATHA [Suspect]
     Active Substance: EVOLOCUMAB
     Indication: Product used for unknown indication
     Dosage: UNK
     Route: 065

REACTIONS (2)
  - Injection site rash [Unknown]
  - Injection site urticaria [Unknown]
